FAERS Safety Report 10018531 (Version 1)
Quarter: 2014Q1

REPORT INFORMATION
  Report Type: Spontaneous
  Country: JP (occurrence: None)
  Receive Date: 20140312
  Receipt Date: 20140312
  Transmission Date: 20141002
  Serious: Yes (Hospitalization)
  Sender: FDA-Public Use
  Company Number: FK201400745

PATIENT
  Age: 82 Year
  Sex: Female

DRUGS (3)
  1. METHOTREXATE (MANUFACTURER UNKNOWN) (METHOTREXATE) (METHOTREXATE) [Suspect]
     Indication: RHEUMATOID ARTHRITIS
  2. GRANULOCYTE COLONY-STIMULATING FACTOR NOS [Concomitant]
  3. EMPIRIC [Concomitant]

REACTIONS (14)
  - Gastrointestinal mucosal necrosis [None]
  - Constipation [None]
  - Nausea [None]
  - Abdominal distension [None]
  - Abdominal pain upper [None]
  - Stomatitis [None]
  - Pleural effusion [None]
  - Pancytopenia [None]
  - Continuous haemodiafiltration [None]
  - Gastroenteritis staphylococcal [None]
  - Gastrointestinal inflammation [None]
  - Anaemia [None]
  - Colitis [None]
  - Scar [None]
